FAERS Safety Report 20644241 (Version 1)
Quarter: 2022Q1

REPORT INFORMATION
  Report Type: Spontaneous
  Country: US (occurrence: US)
  Receive Date: 20220328
  Receipt Date: 20220328
  Transmission Date: 20220423
  Serious: Yes (Hospitalization)
  Sender: FDA-Public Use
  Company Number: US-PFIZER INC-202200426053

PATIENT
  Age: 64 Year
  Sex: Male

DRUGS (1)
  1. INLYTA [Suspect]
     Active Substance: AXITINIB
     Dosage: 5 MG, 2X/DAY (TAKE ONE TABLET EVERY 12 HOURS WITH PLENTY OF WATER)
     Dates: start: 202012

REACTIONS (3)
  - Second primary malignancy [Unknown]
  - Lung neoplasm malignant [Unknown]
  - Pulmonary thrombosis [Unknown]
